FAERS Safety Report 10030574 (Version 2)
Quarter: 2014Q1

REPORT INFORMATION
  Report Type: Spontaneous
  Country: US (occurrence: US)
  Receive Date: 20140323
  Receipt Date: 20140323
  Transmission Date: 20141002
  Serious: No
  Sender: FDA-Public Use
  Company Number: US-ALLERGAN-1318629US

PATIENT
  Sex: Female

DRUGS (1)
  1. LATISSE 0.03% [Suspect]
     Indication: GROWTH OF EYELASHES
     Dosage: UNK, QHS

REACTIONS (8)
  - Ocular icterus [Recovered/Resolved]
  - Photophobia [Not Recovered/Not Resolved]
  - Excessive eye blinking [Recovered/Resolved]
  - Abnormal sensation in eye [Recovered/Resolved]
  - Eye infection [Recovered/Resolved]
  - Eye discharge [Recovered/Resolved]
  - Eye discharge [Recovered/Resolved]
  - Eye pain [Recovered/Resolved]
